FAERS Safety Report 11269859 (Version 1)
Quarter: 2015Q3

REPORT INFORMATION
  Report Type: Spontaneous
  Country: US (occurrence: US)
  Receive Date: 20150714
  Receipt Date: 20150714
  Transmission Date: 20151125
  Serious: No
  Sender: FDA-Public Use
  Company Number: US-VIIV HEALTHCARE LIMITED-US2015GSK098926

PATIENT
  Sex: Female

DRUGS (4)
  1. REYATAZ [Concomitant]
     Active Substance: ATAZANAVIR SULFATE
  2. TIVICAY [Suspect]
     Active Substance: DOLUTEGRAVIR SODIUM
     Indication: HIV INFECTION
     Dosage: 50 MG, QD
     Route: 065
  3. TRUVADA [Suspect]
     Active Substance: EMTRICITABINE\TENOFOVIR DISOPROXIL FUMARATE
     Indication: HIV INFECTION
     Dosage: UNK, U
     Route: 065
  4. NORVIR [Concomitant]
     Active Substance: RITONAVIR

REACTIONS (1)
  - Hepatic enzyme increased [Unknown]
